FAERS Safety Report 5199069-9 (Version None)
Quarter: 2006Q4

REPORT INFORMATION
  Report Type: 
  Country: None (occurrence: None)
  Receive Date: 20060919
  Receipt Date: 20050805
  Transmission Date: 20070319
  Serious: Yes (Other)
  Sender: FDA-Public Use
  Company Number: HQWYE803509AUG05

PATIENT
  Age: 41 Year
  Sex: Male
  Weight: 90.8 kg

DRUGS (4)
  1. ADVIL [Suspect]
     Indication: PAIN
     Dosage: 3 LIQUI-GELS ONCE, ORAL
     Route: 048
     Dates: start: 20050701, end: 20050701
  2. COENZYME Q10 (COENZYME Q10) [Concomitant]
  3. LIPITOR [Concomitant]
  4. ZETIA [Concomitant]

REACTIONS (4)
  - BURNING SENSATION [None]
  - HYPOAESTHESIA [None]
  - MEDICATION ERROR [None]
  - ORAL DISCOMFORT [None]
